FAERS Safety Report 17003835 (Version 1)
Quarter: 2019Q4

REPORT INFORMATION
  Report Type: Report from Study
  Country: SE (occurrence: SE)
  Receive Date: 20191107
  Receipt Date: 20191107
  Transmission Date: 20200122
  Serious: Yes (Death)
  Sender: FDA-Public Use
  Company Number: SE-PFIZER INC-2019473133

PATIENT

DRUGS (2)
  1. JAVLOR (VINFLUNINE) [Suspect]
     Active Substance: VINFLUNINE DITARTRATE
     Indication: TRANSITIONAL CELL CANCER OF THE RENAL PELVIS AND URETER
     Dosage: UNK, CYCLIC
     Route: 042
  2. GEMCITABINE HYDROCHLORIDE. [Suspect]
     Active Substance: GEMCITABINE HYDROCHLORIDE
     Indication: TRANSITIONAL CELL CANCER OF THE RENAL PELVIS AND URETER
     Dosage: 1000 MG/M2, CYCLIC (ON DAYS 1 AND 8, Q 21 DAYS)
     Route: 042

REACTIONS (1)
  - Febrile neutropenia [Fatal]
